FAERS Safety Report 9976737 (Version 1)
Quarter: 2014Q1

REPORT INFORMATION
  Report Type: Report from Study
  Country: US (occurrence: US)
  Receive Date: 20140306
  Receipt Date: 20140306
  Transmission Date: 20141002
  Serious: No
  Sender: FDA-Public Use
  Company Number: US-ABBVIE-13P-163-1164865-00

PATIENT
  Age: 70 Year
  Sex: Male

DRUGS (18)
  1. HUMIRA [Suspect]
     Indication: COLITIS ULCERATIVE
     Dosage: LOADING DOSE
     Dates: start: 20130929, end: 20130929
  2. HUMIRA [Suspect]
     Dosage: LOADING DOSE
     Dates: start: 20131013, end: 20131013
  3. HUMIRA [Suspect]
  4. TRAZODONE [Concomitant]
     Indication: INSOMNIA
     Dosage: 150 MG DAILY
  5. GABAPENTIN [Concomitant]
     Indication: ARTHRITIS
  6. ASACOL [Concomitant]
     Indication: COLITIS ULCERATIVE
  7. SIMVASTATIN [Concomitant]
     Indication: BLOOD CHOLESTEROL INCREASED
     Dosage: 40 MG DAILY
  8. RAMIPRIL [Concomitant]
     Indication: HYPERTENSION
     Dosage: 5 MG DAILY
  9. ADVAIR [Concomitant]
     Indication: CHRONIC OBSTRUCTIVE PULMONARY DISEASE
     Dosage: 550 INHALER
  10. NEXIUM [Concomitant]
     Indication: GASTRIC DISORDER
     Dosage: 40 MG DAILY
  11. AMBIEN [Concomitant]
     Indication: INSOMNIA
     Dosage: 10 MG DAILY
  12. LORAZEPAM [Concomitant]
     Indication: INSOMNIA
     Dosage: 2 MG DAILY
  13. FINASTERIDE [Concomitant]
     Indication: BENIGN PROSTATIC HYPERPLASIA
     Dosage: PROSTATE
  14. PREDNISONE [Concomitant]
     Indication: COLITIS ULCERATIVE
  15. CALCIUM [Concomitant]
     Indication: PRODUCT USED FOR UNKNOWN INDICATION
  16. FOLIC ACID [Concomitant]
     Indication: PRODUCT USED FOR UNKNOWN INDICATION
  17. VITAMIN B12 [Concomitant]
     Indication: PRODUCT USED FOR UNKNOWN INDICATION
  18. VITAMIN B COMPLEX [Concomitant]
     Indication: PRODUCT USED FOR UNKNOWN INDICATION

REACTIONS (1)
  - Drug dose omission [Unknown]
